FAERS Safety Report 24041153 (Version 3)
Quarter: 2024Q3

REPORT INFORMATION
  Report Type: Spontaneous
  Country: AT (occurrence: AT)
  Receive Date: 20240702
  Receipt Date: 20240930
  Transmission Date: 20241016
  Serious: Yes (Life-Threatening, Hospitalization, Other)
  Sender: BRISTOL MYERS SQUIBB
  Company Number: AT-BRISTOL-MYERS SQUIBB COMPANY-2024-104478

PATIENT
  Age: 57 Year
  Sex: Male

DRUGS (2)
  1. NIVOLUMAB [Suspect]
     Active Substance: NIVOLUMAB
     Indication: Metastatic renal cell carcinoma
     Dosage: DOSE : 72 MG 216 MG
     Route: 042
     Dates: start: 20240508, end: 20240529
  2. IPILIMUMAB [Suspect]
     Active Substance: IPILIMUMAB
     Indication: Metastatic renal cell carcinoma
     Dosage: DAILY DOSE: 72MG 216 MG
     Route: 042
     Dates: start: 20240508, end: 20240529

REACTIONS (1)
  - Pneumonia [Recovering/Resolving]
